FAERS Safety Report 17495241 (Version 4)
Quarter: 2020Q4

REPORT INFORMATION
  Report Type: Other
  Country: AT (occurrence: AT)
  Receive Date: 20200304
  Receipt Date: 20201110
  Transmission Date: 20210113
  Serious: Yes (Death, Hospitalization)
  Sender: FDA-Public Use
  Company Number: AT-ROCHE-2558024

PATIENT
  Sex: Female

DRUGS (7)
  1. RITUXIMAB. [Suspect]
     Active Substance: RITUXIMAB
     Indication: ANTISYNTHETASE SYNDROME
     Dosage: ON DAY 8 AND 15 POST HLH DIAGNOSIS
     Route: 065
  2. PREDNISOLONE. [Suspect]
     Active Substance: PREDNISOLONE
     Indication: HAEMOPHAGOCYTIC LYMPHOHISTIOCYTOSIS
     Dosage: 1 MG/KG STARTED WITH A DAILY DOSE OF 500 MG FOR 3 DAYS, 250 MG FOR 3 DAYS, 100 MG FOR 3 DAYS
     Route: 065
  3. IMMUNOGLOBULIN HUMAN NORMAL [Suspect]
     Active Substance: HUMAN IMMUNOGLOBULIN G
     Indication: HAEMOPHAGOCYTIC LYMPHOHISTIOCYTOSIS
     Dosage: 0.5-1 G/KG FOR 3-6 DAYS
     Route: 042
  4. KINERET [Suspect]
     Active Substance: ANAKINRA
     Indication: HAEMOPHAGOCYTIC LYMPHOHISTIOCYTOSIS
     Route: 058
  5. KINERET [Suspect]
     Active Substance: ANAKINRA
     Dosage: FROM DAY 3 POST HLH DIAGNOSIS, ABSOLUTE DOSE OF 100- 200MG 3X DAILY
     Route: 058
  6. GANCICLOVIR. [Suspect]
     Active Substance: GANCICLOVIR
     Indication: CYTOMEGALOVIRUS INFECTION
     Route: 065
  7. CYCLOPHOSPHAMIDE. [Suspect]
     Active Substance: CYCLOPHOSPHAMIDE
     Indication: ANTISYNTHETASE SYNDROME
     Dosage: ON DAY 14 POST HLH DIAGNOSIS
     Route: 065

REACTIONS (5)
  - Restrictive pulmonary disease [Unknown]
  - Clostridium difficile colitis [Unknown]
  - Infection [Fatal]
  - Nosocomial infection [Unknown]
  - Vascular device infection [Unknown]
